FAERS Safety Report 15451329 (Version 1)
Quarter: 2018Q3

REPORT INFORMATION
  Report Type: Spontaneous
  Country: US (occurrence: US)
  Receive Date: 20180927
  Receipt Date: 20180927
  Transmission Date: 20181010
  Serious: Yes (Hospitalization)
  Sender: FDA-Public Use
  Company Number: None

PATIENT
  Age: 60 Year
  Sex: Male

DRUGS (9)
  1. VELTASSA [Suspect]
     Active Substance: PATIROMER
     Indication: HYPERKALAEMIA
     Route: 048
     Dates: start: 20180518, end: 20180901
  2. LACTULOSE 10GM/15ML SOLUTION [Concomitant]
     Active Substance: LACTULOSE
     Dates: start: 20180427
  3. HYDROCODONE / ACETAMINOPHEN 7.5MG?325 [Concomitant]
     Dates: start: 20180427
  4. NOVOLIN INSULIN 70/30 [Concomitant]
     Dates: start: 20180427
  5. KIONEX 15GM/60ML SUSPENSION [Concomitant]
     Dates: start: 20180427
  6. ASPIRIN 81MG EC [Concomitant]
     Dates: start: 20180427
  7. ATORVASTATIN 40MG [Concomitant]
     Active Substance: ATORVASTATIN
     Dates: start: 20180427
  8. PAROXETINE 10MG [Concomitant]
     Active Substance: PAROXETINE HYDROCHLORIDE
     Dates: start: 20180427
  9. CLOPIDOGREL 75MG TAB [Concomitant]
     Dates: start: 20180427

REACTIONS (3)
  - Dialysis [None]
  - Infection [None]
  - Myocardial infarction [None]

NARRATIVE: CASE EVENT DATE: 20180902
